FAERS Safety Report 8346854-8 (Version None)
Quarter: 2012Q2

REPORT INFORMATION
  Report Type: 
  Country: None (occurrence: None)
  Receive Date: 20120509
  Receipt Date: 20120503
  Transmission Date: 20120825
  Serious: Yes (Death, Life-Threatening, Hospitalization)
  Sender: FDA-Public Use
  Company Number: NL-SANOFI-AVENTIS-2012SA031481

PATIENT
  Age: 74 Year
  Sex: Female
  Weight: 56 kg

DRUGS (4)
  1. MOMETASONE FUROATE [Concomitant]
     Dosage: DOSE: ON BEKEND
     Route: 045
  2. CAPECITABINE [Suspect]
     Indication: CHEMOTHERAPY
     Route: 065
     Dates: start: 20111220
  3. DESLORATADINE [Concomitant]
     Route: 048
  4. OXALIPLATIN [Suspect]
     Indication: CHEMOTHERAPY
     Route: 042
     Dates: start: 20111220, end: 20111220

REACTIONS (2)
  - MESENTERIC VEIN THROMBOSIS [None]
  - MALAISE [None]
